FAERS Safety Report 13919800 (Version 2)
Quarter: 2018Q1

REPORT INFORMATION
  Report Type: Report from Study
  Country: None (occurrence: US)
  Receive Date: 20170830
  Receipt Date: 20180108
  Transmission Date: 20180508
  Serious: Yes (Disabling, Other)
  Sender: FDA-Public Use
  Company Number: US-ABBVIE-17K-163-2082658-00

PATIENT
  Age: 59 Year
  Sex: Female
  Weight: 105.33 kg

DRUGS (13)
  1. TRAMADOL. [Concomitant]
     Active Substance: TRAMADOL
     Indication: PAIN
  2. HYDROCODONE [Concomitant]
     Active Substance: HYDROCODONE
     Indication: PAIN
  3. CRANBERRY. [Concomitant]
     Active Substance: CRANBERRY
     Indication: URINARY TRACT INFECTION
  4. HUMIRA [Suspect]
     Active Substance: ADALIMUMAB
     Indication: RHEUMATOID ARTHRITIS
     Route: 058
     Dates: start: 2011, end: 20170526
  5. NORCO [Concomitant]
     Active Substance: ACETAMINOPHEN\HYDROCODONE BITARTRATE
     Indication: PAIN
  6. METFORMIN [Concomitant]
     Active Substance: METFORMIN HYDROCHLORIDE
     Indication: DIABETES MELLITUS
  7. EFFEXOR [Concomitant]
     Active Substance: VENLAFAXINE HYDROCHLORIDE
     Indication: DEPRESSION
  8. HUMIRA [Suspect]
     Active Substance: ADALIMUMAB
     Route: 058
     Dates: start: 2017, end: 20171001
  9. PRILOSEC [Concomitant]
     Active Substance: OMEPRAZOLE MAGNESIUM
     Indication: GASTRIC DISORDER
  10. XANAX [Concomitant]
     Active Substance: ALPRAZOLAM
     Indication: PRODUCT USED FOR UNKNOWN INDICATION
  11. HUMIRA [Suspect]
     Active Substance: ADALIMUMAB
     Route: 058
     Dates: start: 20171015, end: 20171201
  12. HUMIRA [Suspect]
     Active Substance: ADALIMUMAB
     Route: 058
     Dates: start: 20171215
  13. CRANBERRY. [Concomitant]
     Active Substance: CRANBERRY
     Indication: GOUT

REACTIONS (20)
  - Joint swelling [Not Recovered/Not Resolved]
  - Wrist fracture [Unknown]
  - Ankle fracture [Unknown]
  - Joint range of motion decreased [Not Recovered/Not Resolved]
  - Influenza [Unknown]
  - Fall [Recovered/Resolved]
  - Weight decreased [Unknown]
  - Urinary tract infection [Not Recovered/Not Resolved]
  - Fibula fracture [Unknown]
  - Arthralgia [Unknown]
  - Rash [Not Recovered/Not Resolved]
  - Gait inability [Not Recovered/Not Resolved]
  - Tendon rupture [Unknown]
  - Ligament rupture [Not Recovered/Not Resolved]
  - Contusion [Unknown]
  - Gout [Not Recovered/Not Resolved]
  - Diarrhoea [Not Recovered/Not Resolved]
  - Meniscus injury [Unknown]
  - Arthralgia [Not Recovered/Not Resolved]
  - Ligament rupture [Unknown]

NARRATIVE: CASE EVENT DATE: 2014
